FAERS Safety Report 8583453-7 (Version None)
Quarter: 2012Q3

REPORT INFORMATION
  Report Type: 
  Country: None (occurrence: None)
  Receive Date: 20120809
  Receipt Date: 20120731
  Transmission Date: 20120928
  Serious: Yes (Hospitalization)
  Sender: FDA-Public Use
  Company Number: US-ROCHE-1089055

PATIENT
  Sex: Female
  Weight: 64.014 kg

DRUGS (9)
  1. LIPITOR [Concomitant]
     Indication: HYPERCHOLESTEROLAEMIA
     Route: 048
     Dates: start: 20050402
  2. RANIBIZUMAB [Suspect]
     Indication: DIABETIC RETINAL OEDEMA
     Dosage: 0.5/2.0 MG, DATE OF LAST DOSE PRIOR TO SAE: 12/JUN/2012
     Route: 050
     Dates: start: 20101008
  3. INSULIN 30/70 [Concomitant]
     Indication: DIABETES MELLITUS
     Dosage: 10-20 UNITS DAILY
     Route: 058
     Dates: start: 20030101
  4. VITAMIN [Concomitant]
     Dates: start: 20090305
  5. LASIX [Concomitant]
  6. SYNTHROID [Concomitant]
     Indication: HYPOTHYROIDISM
     Route: 048
     Dates: start: 20050101
  7. ASPIRIN [Concomitant]
     Indication: PROPHYLAXIS
     Route: 048
     Dates: start: 20030101
  8. FOSAMAX [Concomitant]
     Dates: start: 20050101
  9. OSTEOCAL [Concomitant]
     Dates: start: 20090305

REACTIONS (3)
  - LOBAR PNEUMONIA [None]
  - BRONCHITIS [None]
  - CARDIAC FAILURE CONGESTIVE [None]
